FAERS Safety Report 13817135 (Version 1)
Quarter: 2017Q3

REPORT INFORMATION
  Report Type: Report from Study
  Country: SE (occurrence: SE)
  Receive Date: 20170731
  Receipt Date: 20170731
  Transmission Date: 20171127
  Serious: Yes (Other)
  Sender: FDA-Public Use
  Company Number: SE-MYLANLABS-2017M1045956

PATIENT

DRUGS (2)
  1. BUDESONIDE. [Suspect]
     Active Substance: BUDESONIDE
     Indication: IGA NEPHROPATHY
     Dosage: 16 MG/DAY
     Route: 065
  2. BUDESONIDE. [Suspect]
     Active Substance: BUDESONIDE
     Indication: PROTEINURIA
     Dosage: 16 MG/DAY
     Route: 065

REACTIONS (1)
  - Rhabdomyolysis [Recovered/Resolved]
